FAERS Safety Report 10597317 (Version 2)
Quarter: 2014Q4

REPORT INFORMATION
  Report Type: Spontaneous
  Country: DE (occurrence: DE)
  Receive Date: 20141121
  Receipt Date: 20141128
  Transmission Date: 20150529
  Serious: Yes (Other)
  Sender: FDA-Public Use
  Company Number: DE-AUROBINDO-AUR-APL-2014-12152

PATIENT
  Age: 0 Day
  Sex: Male
  Weight: 3.58 kg

DRUGS (7)
  1. NEMEXIN [Concomitant]
     Indication: ALCOHOLISM
     Dosage: 50 MG, ONCE A DAY, MAY BE LONGER
     Route: 064
     Dates: start: 20130920, end: 20131119
  2. VENLAFAXINE [Suspect]
     Active Substance: VENLAFAXINE HYDROCHLORIDE
     Indication: ALCOHOLISM
     Dosage: 225 MG, ONCE A DAY, MAY BE LONGER
     Route: 050
     Dates: start: 20130920, end: 20131119
  3. QUETIAPINE [Suspect]
     Active Substance: QUETIAPINE
     Indication: ALCOHOLISM
     Dosage: 75 MG, ONCE A DAY IF REQUIRED MAY BE LONGER
     Route: 050
     Dates: start: 20130920, end: 20131119
  4. VENLAFAXINE [Suspect]
     Active Substance: VENLAFAXINE HYDROCHLORIDE
     Indication: BORDERLINE PERSONALITY DISORDER
     Dosage: 225 MG, ONCE A DAY
     Route: 064
     Dates: start: 20130920
  5. VENLAFAXINE [Suspect]
     Active Substance: VENLAFAXINE HYDROCHLORIDE
     Dosage: 75 MG, ONCE A DAY
     Route: 064
     Dates: end: 20140623
  6. QUETIAPINE 100MG LUPIN [Suspect]
     Active Substance: QUETIAPINE
     Indication: BORDERLINE PERSONALITY DISORDER
     Dosage: 100 MG, ONCE A DAY
     Route: 064
     Dates: start: 20130920, end: 20140623
  7. FOLIO FORTE [Concomitant]
     Active Substance: FOLIC ACID\VITAMINS
     Indication: PROPHYLAXIS OF NEURAL TUBE DEFECT
     Dosage: 0.8 MG, ONCE A DAY
     Route: 064
     Dates: start: 20130920, end: 20140623

REACTIONS (4)
  - Exposure via father [Unknown]
  - Respiratory disorder neonatal [Recovered/Resolved]
  - Crying [Unknown]
  - Maternal exposure during pregnancy [Unknown]

NARRATIVE: CASE EVENT DATE: 20140623
